FAERS Safety Report 5574228-1 (Version None)
Quarter: 2007Q4

REPORT INFORMATION
  Report Type: 
  Country: None (occurrence: None)
  Receive Date: 20071227
  Receipt Date: 20071219
  Transmission Date: 20080405
  Serious: Yes (Hospitalization)
  Sender: FDA-Public Use
  Company Number: JP-BRISTOL-MYERS SQUIBB COMPANY-14016885

PATIENT
  Age: 89 Year
  Sex: Male

DRUGS (2)
  1. GATIFLOXACIN [Suspect]
     Indication: PNEUMONIA
     Dosage: 200MG, DIVIDED B.I.D.
     Route: 048
     Dates: start: 20071120, end: 20071127
  2. FINIBAX [Suspect]
     Indication: PNEUMONIA
     Route: 041

REACTIONS (1)
  - THROMBOCYTOPENIA [None]
